FAERS Safety Report 23131442 (Version 1)
Quarter: 2023Q4

REPORT INFORMATION
  Report Type: Spontaneous
  Country: CZ (occurrence: CZ)
  Receive Date: 20231031
  Receipt Date: 20231031
  Transmission Date: 20240110
  Serious: Yes (Hospitalization, Other)
  Sender: FDA-Public Use
  Company Number: CZ-SA-SAC20230810000658

PATIENT
  Age: 54 Year
  Sex: Male

DRUGS (13)
  1. HYDROCORTISONE [Suspect]
     Active Substance: HYDROCORTISONE
     Indication: Product used for unknown indication
     Dosage: UNK
     Route: 042
     Dates: start: 20231005
  2. METHYLPREDNISOLONE SODIUM SUCCINATE [Suspect]
     Active Substance: METHYLPREDNISOLONE SODIUM SUCCINATE
     Indication: Pneumonitis
     Dosage: UNK
     Route: 042
  3. DUPIXENT [Suspect]
     Active Substance: DUPILUMAB
     Indication: Chronic rhinosinusitis with nasal polyps
     Dosage: UNK
     Route: 058
     Dates: start: 20230805
  4. DUPIXENT [Suspect]
     Active Substance: DUPILUMAB
     Indication: Asthma
     Dosage: 300 MG, QOW
     Dates: start: 20230721
  5. METHYLPREDNISOLONE [Suspect]
     Active Substance: METHYLPREDNISOLONE
     Indication: Product used for unknown indication
     Dosage: 8 MG, QD
     Route: 048
     Dates: start: 20230927, end: 20231003
  6. METHYLPREDNISOLONE [Suspect]
     Active Substance: METHYLPREDNISOLONE
     Dosage: 1 DF
     Route: 048
     Dates: end: 20230926
  7. AUGMENTIN [Suspect]
     Active Substance: AMOXICILLIN\CLAVULANATE POTASSIUM
     Indication: Product used for unknown indication
     Dosage: UNK
     Route: 065
  8. CEFUROXIME SODIUM [Concomitant]
     Active Substance: CEFUROXIME SODIUM
     Indication: Product used for unknown indication
     Dosage: UNK
     Route: 065
  9. CETIRIZINE HYDROCHLORIDE [Concomitant]
     Active Substance: CETIRIZINE HYDROCHLORIDE
     Indication: Asthma
     Dosage: UNK
     Route: 065
  10. MONTELAR [LEVOCETIRIZINE DIHYDROCHLORIDE;MONTELUKAST SODIUM] [Concomitant]
     Indication: Asthma
     Dosage: UNK
     Route: 065
  11. AVELOX [Concomitant]
     Active Substance: MOXIFLOXACIN HYDROCHLORIDE
     Indication: Product used for unknown indication
     Dosage: UNK
     Route: 065
  12. FULLHALE [Concomitant]
     Indication: Asthma
     Dosage: UNK
     Route: 065
  13. CLARITHROMYCIN [Concomitant]
     Active Substance: CLARITHROMYCIN
     Indication: Product used for unknown indication
     Dosage: UNK
     Route: 065

REACTIONS (24)
  - Pneumonitis [Unknown]
  - Pneumonia [Unknown]
  - Dyspnoea [Unknown]
  - Disturbance in attention [Unknown]
  - Bronchiectasis [Unknown]
  - Myalgia [Unknown]
  - Eosinophil count increased [Recovering/Resolving]
  - Headache [Unknown]
  - Eosinophilic granulomatosis with polyangiitis [Unknown]
  - Cough [Unknown]
  - Pain in extremity [Unknown]
  - Body temperature increased [Unknown]
  - Nausea [Unknown]
  - Intraocular pressure increased [Unknown]
  - Pyrexia [Unknown]
  - Antineutrophil cytoplasmic antibody positive [Unknown]
  - Paraesthesia [Unknown]
  - Fatigue [Unknown]
  - Dizziness [Unknown]
  - Erythema [Unknown]
  - Tremor [Unknown]
  - Vertigo [Unknown]
  - Rash [Recovered/Resolved]
  - Malaise [Unknown]

NARRATIVE: CASE EVENT DATE: 20230101
